FAERS Safety Report 8169896-4 (Version None)
Quarter: 2012Q1

REPORT INFORMATION
  Report Type: 
  Country: None (occurrence: None)
  Receive Date: 20120105
  Receipt Date: 20101214
  Transmission Date: 20120608
  Serious: Yes (Hospitalization)
  Sender: FDA-Public Use
  Company Number: US-005711

PATIENT
  Age: 43 Year
  Sex: Female

DRUGS (3)
  1. ALBUTEROL INHALER (SALBUTAMOL) [Concomitant]
  2. PROHANCE [Suspect]
     Indication: NUCLEAR MAGNETIC RESONANCE IMAGING
     Dosage: 20ML ONCE INTRAVENOUS (NOT OTHERWISE SPECIFIED)
     Route: 042
     Dates: start: 20101210, end: 20101210
  3. PREMEDICATION DUE TO PREVIOUS GADOLINIUM CONTRAST MEDIA REACTION [Concomitant]

REACTIONS (1)
  - ANAPHYLACTIC REACTION [None]
